FAERS Safety Report 8614628-6 (Version None)
Quarter: 2012Q3

REPORT INFORMATION
  Report Type: 
  Country: None (occurrence: None)
  Receive Date: 20120823
  Receipt Date: 20120821
  Transmission Date: 20120928
  Serious: Yes (Death)
  Sender: FDA-Public Use
  Company Number: PHHY2012CA068436

PATIENT
  Sex: Male

DRUGS (9)
  1. CLOZARIL [Suspect]
     Indication: DEMENTIA WITH LEWY BODIES
     Dosage: 12.5 MG, BID
     Route: 048
     Dates: start: 20111113, end: 20120715
  2. SYNTHROID [Concomitant]
     Dosage: 0.05 UKN, UNK
  3. ZYPREXA [Concomitant]
     Dosage: 2.5 MG, BID
  4. LACTULOSE [Concomitant]
  5. LYRICA [Concomitant]
     Dosage: 75 MG, UNK
  6. EXELON [Concomitant]
     Dosage: 6 MG, BID
  7. SENOKOT [Concomitant]
     Dosage: 200 MG, BID
  8. LYRICA [Concomitant]
     Dosage: 150 MG, UNK
  9. TYLENOL [Concomitant]
     Dosage: 500 UKN, QID

REACTIONS (4)
  - PROSTATE CANCER [None]
  - DEMENTIA WITH LEWY BODIES [None]
  - GENERAL PHYSICAL HEALTH DETERIORATION [None]
  - URINARY TRACT INFECTION [None]
